FAERS Safety Report 8567803-3 (Version None)
Quarter: 2012Q3

REPORT INFORMATION
  Report Type: 
  Country: None (occurrence: None)
  Receive Date: 20120803
  Receipt Date: 20120727
  Transmission Date: 20120928
  Serious: Yes (Hospitalization, Other)
  Sender: FDA-Public Use
  Company Number: GB-ROCHE-796033

PATIENT
  Sex: Female
  Weight: 57 kg

DRUGS (2)
  1. FLUCLOX [Concomitant]
     Route: 042
     Dates: start: 20110225
  2. MABTHERA [Suspect]
     Indication: RHEUMATOID ARTHRITIS

REACTIONS (7)
  - PAROTITIS [None]
  - HYPONATRAEMIA [None]
  - CHRONIC OBSTRUCTIVE PULMONARY DISEASE [None]
  - AORTIC STENOSIS [None]
  - HALLUCINATION, VISUAL [None]
  - ARTHRITIS BACTERIAL [None]
  - INFECTIVE EXACERBATION OF CHRONIC OBSTRUCTIVE AIRWAYS DISEASE [None]
